FAERS Safety Report 18933581 (Version 2)
Quarter: 2021Q1

REPORT INFORMATION
  Report Type: Report from Study
  Country: None (occurrence: US)
  Receive Date: 20210224
  Receipt Date: 20210316
  Transmission Date: 20210420
  Serious: Yes (Hospitalization, Other)
  Sender: FDA-Public Use
  Company Number: US-ABBVIE-20K-163-3680704-00

PATIENT
  Age: 61 Year
  Sex: Female
  Weight: 47.67 kg

DRUGS (3)
  1. HUMIRA [Suspect]
     Active Substance: ADALIMUMAB
     Indication: RHEUMATOID ARTHRITIS
     Dosage: CITRATE FREE
     Route: 058
     Dates: start: 20200701, end: 20201128
  2. LEFLUNOMIDE. [Concomitant]
     Active Substance: LEFLUNOMIDE
     Indication: RHEUMATOID ARTHRITIS
  3. HUMIRA [Suspect]
     Active Substance: ADALIMUMAB
     Dosage: CITRATE FREE
     Route: 058
     Dates: start: 20210102

REACTIONS (18)
  - Joint swelling [Not Recovered/Not Resolved]
  - Joint stiffness [Not Recovered/Not Resolved]
  - Blood calcium abnormal [Recovered/Resolved]
  - Nasopharyngitis [Unknown]
  - Paranasal sinus hypersecretion [Not Recovered/Not Resolved]
  - Parathyroidectomy [Recovered/Resolved]
  - Joint range of motion decreased [Recovered/Resolved]
  - Peripheral swelling [Recovering/Resolving]
  - Parathyroid disorder [Unknown]
  - Injection site bruising [Unknown]
  - Hypercalcaemia [Recovered/Resolved]
  - Rhinorrhoea [Recovered/Resolved]
  - Rhinorrhoea [Not Recovered/Not Resolved]
  - Fatigue [Recovering/Resolving]
  - Blood calcium increased [Recovering/Resolving]
  - Injection site haemorrhage [Unknown]
  - Decreased activity [Recovering/Resolving]
  - Contusion [Recovered/Resolved]

NARRATIVE: CASE EVENT DATE: 2020
